FAERS Safety Report 4290433-9 (Version None)
Quarter: 2004Q1

REPORT INFORMATION
  Report Type: 
  Country: None (occurrence: None)
  Receive Date: 20040209
  Receipt Date: 20040123
  Transmission Date: 20041129
  Serious: Yes (Congenital Anomaly)
  Sender: FDA-Public Use
  Company Number: 8005083

PATIENT
  Age: 0 Day
  Sex: Male
  Weight: 4.4 kg

DRUGS (2)
  1. KEPPRA [Suspect]
     Indication: EPILEPSY
     Dosage: TRP
     Route: 064
     Dates: end: 20040122
  2. CARBABETA - SLOW RELEASE ^BETAPHARM^ [Suspect]
     Indication: EPILEPSY
     Dosage: TRP
     Route: 064
     Dates: end: 20040122

REACTIONS (7)
  - APGAR SCORE LOW [None]
  - CAESAREAN SECTION [None]
  - CONGENITAL FOOT MALFORMATION [None]
  - CONGENITAL HYPERTRICHOSIS [None]
  - MATERNAL DRUGS AFFECTING FOETUS [None]
  - POSTMATURE BABY [None]
  - PROLONGED PREGNANCY [None]
